FAERS Safety Report 25082803 (Version 2)
Quarter: 2025Q1

REPORT INFORMATION
  Report Type: Report from Study
  Country: CA (occurrence: CA)
  Receive Date: 20250317
  Receipt Date: 20250321
  Transmission Date: 20250409
  Serious: Yes (Hospitalization)
  Sender: TAKEDA
  Company Number: CA-TAKEDA-2025TUS025748

PATIENT
  Sex: Male

DRUGS (10)
  1. VEDOLIZUMAB [Suspect]
     Active Substance: VEDOLIZUMAB
     Indication: Crohn^s disease
  2. PREDNISONE [Concomitant]
     Active Substance: PREDNISONE
  3. ZOPICLONE [Concomitant]
     Active Substance: ZOPICLONE
  4. LORAZEPAM [Concomitant]
     Active Substance: LORAZEPAM
  5. SULFATRIM [Concomitant]
     Active Substance: SULFAMETHOXAZOLE\TRIMETHOPRIM
  6. IMODIUM [Concomitant]
     Active Substance: LOPERAMIDE HYDROCHLORIDE
  7. BUPROPION [Concomitant]
     Active Substance: BUPROPION
  8. URSODIOL [Concomitant]
     Active Substance: URSODIOL
  9. VITAMIN A [Concomitant]
     Active Substance: VITAMIN A
  10. PANTOPRAZOLE SODIUM [Concomitant]
     Active Substance: PANTOPRAZOLE SODIUM

REACTIONS (1)
  - Influenza [Not Recovered/Not Resolved]
